FAERS Safety Report 25331826 (Version 1)
Quarter: 2025Q2

REPORT INFORMATION
  Report Type: Spontaneous
  Country: US (occurrence: US)
  Receive Date: 20250519
  Receipt Date: 20250519
  Transmission Date: 20250717
  Serious: No
  Sender: BAYER HEALTHCARE PHARMACEUTICALS INC.
  Company Number: US-BAYER-2025A066101

PATIENT
  Age: 41 Year
  Sex: Female

DRUGS (3)
  1. MIRENA [Suspect]
     Active Substance: LEVONORGESTREL
     Indication: Intrauterine contraception
     Dosage: 20?G/DAY
     Route: 015
     Dates: start: 202402
  2. DUPIXENT [Concomitant]
     Active Substance: DUPILUMAB
  3. RINVOQ [Concomitant]
     Active Substance: UPADACITINIB

REACTIONS (3)
  - Fatigue [None]
  - Pain in extremity [None]
  - Acne [None]

NARRATIVE: CASE EVENT DATE: 20250401
